FAERS Safety Report 25733163 (Version 2)
Quarter: 2025Q3

REPORT INFORMATION
  Report Type: Spontaneous
  Country: US (occurrence: US)
  Receive Date: 20250828
  Receipt Date: 20250901
  Transmission Date: 20251021
  Serious: No
  Sender: Haleon PLC
  Company Number: US-HALEON-2259943

PATIENT
  Sex: Female

DRUGS (1)
  1. ALLI [Suspect]
     Active Substance: ORLISTAT
     Indication: Weight decreased
     Dates: start: 20250819, end: 20250824

REACTIONS (2)
  - Drug ineffective [Unknown]
  - Product counterfeit [Unknown]
